FAERS Safety Report 9071187 (Version 2)
Quarter: 2015Q2

REPORT INFORMATION
  Report Type: Spontaneous
  Country: US (occurrence: US)
  Receive Date: 20130129
  Receipt Date: 20150428
  Transmission Date: 20150821
  Serious: Yes (Other)
  Sender: FDA-Public Use
  Company Number: US-ROCHE-1042810

PATIENT
  Sex: Male
  Weight: 86.26 kg

DRUGS (1)
  1. ACCUTANE [Suspect]
     Active Substance: ISOTRETINOIN
     Indication: ACNE
     Route: 065
     Dates: start: 1999, end: 2000

REACTIONS (6)
  - Inflammatory bowel disease [Unknown]
  - Sacroiliitis [Unknown]
  - Ankylosing spondylitis [Unknown]
  - Colitis ulcerative [Unknown]
  - Irritable bowel syndrome [Unknown]
  - Generalised anxiety disorder [Not Recovered/Not Resolved]

NARRATIVE: CASE EVENT DATE: 2000
